FAERS Safety Report 13862159 (Version 1)
Quarter: 2017Q3

REPORT INFORMATION
  Report Type: Spontaneous
  Country: US (occurrence: US)
  Receive Date: 20170812
  Receipt Date: 20170812
  Transmission Date: 20171127
  Serious: No
  Sender: FDA-Public Use
  Company Number: GXBR2017US000585

PATIENT
  Age: 78 Year
  Sex: Female
  Weight: 79.37 kg

DRUGS (10)
  1. BUMETANIDE TABLETS, USP [Suspect]
     Active Substance: BUMETANIDE
     Indication: CARDIAC FAILURE CHRONIC
     Dosage: 1 MG, TIW
     Route: 048
     Dates: start: 20161201, end: 20170120
  2. COQ10 [Concomitant]
     Active Substance: UBIDECARENONE
     Indication: SUPPLEMENTATION THERAPY
     Dosage: UNK DF, UNK
     Route: 065
  3. DIOVAN [Concomitant]
     Active Substance: VALSARTAN
     Indication: CARDIAC FAILURE CHRONIC
     Dosage: UNK DF, UNK
     Route: 065
  4. PLAVIX [Concomitant]
     Active Substance: CLOPIDOGREL BISULFATE
     Indication: CARDIAC FAILURE CHRONIC
     Dosage: UNK DF, UNK
     Route: 065
  5. CORLENTOR [Concomitant]
     Active Substance: IVABRADINE HYDROCHLORIDE
     Indication: CARDIAC FAILURE CHRONIC
     Dosage: UNK DF, UNK
     Route: 065
  6. MULTI VITAMIN [Concomitant]
     Active Substance: VITAMINS
     Indication: SUPPLEMENTATION THERAPY
     Dosage: UNK DF, UNK
     Route: 065
  7. METOPROLOL. [Concomitant]
     Active Substance: METOPROLOL
     Indication: CARDIAC FAILURE CHRONIC
     Dosage: UNK DF, UNK
     Route: 065
  8. MAGENSIUM VITAFIT [Concomitant]
     Indication: SUPPLEMENTATION THERAPY
     Dosage: UNK DF, UNK
     Route: 065
  9. POTASSIUM [Concomitant]
     Active Substance: POTASSIUM
     Indication: SUPPLEMENTATION THERAPY
     Dosage: UNK DF, UNK
     Route: 065
  10. VITAMIN B COMPLEX [Concomitant]
     Active Substance: CYANOCOBALAMIN\DEXPANTHENOL\NIACINAMIDE\PYRIDOXINE HYDROCHLORIDE\RIBOFLAVIN 5^-PHOSPHATE SODIUM\THIAMINE HYDROCHLORIDE\VITAMIN B COMPLEX
     Indication: SUPPLEMENTATION THERAPY
     Dosage: UNK
     Route: 065

REACTIONS (10)
  - Micturition disorder [Recovering/Resolving]
  - Flatulence [Recovering/Resolving]
  - Myalgia [Recovering/Resolving]
  - Pollakiuria [Recovering/Resolving]
  - Fluid retention [Recovering/Resolving]
  - Urinary incontinence [Recovering/Resolving]
  - Arthralgia [Recovering/Resolving]
  - Weight increased [Recovering/Resolving]
  - Bladder pain [Recovering/Resolving]
  - Drug ineffective [Recovering/Resolving]

NARRATIVE: CASE EVENT DATE: 201612
